FAERS Safety Report 12570205 (Version 1)
Quarter: 2016Q3

REPORT INFORMATION
  Report Type: Report from Study
  Country: US (occurrence: US)
  Receive Date: 20160719
  Receipt Date: 20160719
  Transmission Date: 20161109
  Serious: Yes (Hospitalization, Other)
  Sender: FDA-Public Use
  Company Number: US-MALLINCKRODT-T201602901

PATIENT
  Sex: Female

DRUGS (1)
  1. REPOSITORY CORTICOTROPIN INJECTION [Suspect]
     Active Substance: CORTICOTROPIN
     Indication: SARCOIDOSIS
     Dosage: 80 UNITS / 1 ML, EVERY OTHER DAY
     Route: 058
     Dates: start: 20150602

REACTIONS (5)
  - Dyspnoea [Unknown]
  - Chest pain [Unknown]
  - Pain in extremity [Not Recovered/Not Resolved]
  - Neoplasm [Unknown]
  - Peripheral coldness [Not Recovered/Not Resolved]
